FAERS Safety Report 23757910 (Version 1)
Quarter: 2024Q2

REPORT INFORMATION
  Report Type: Spontaneous
  Country: JP (occurrence: JP)
  Receive Date: 20240418
  Receipt Date: 20240418
  Transmission Date: 20240716
  Serious: Yes (Disabling, Other)
  Sender: FDA-Public Use
  Company Number: JP-PMDA-i2310007707001

PATIENT
  Age: 72 Year
  Sex: Female
  Weight: 53.1 kg

DRUGS (10)
  1. CYCLOPHOSPHAMIDE [Suspect]
     Active Substance: CYCLOPHOSPHAMIDE
     Indication: Breast cancer
     Dosage: UNK, DAILY, START DATE:JAN-2019, AS A PART OF  FEC THERAPY
     Route: 041
  2. EPIRUBICIN HYDROCHLORIDE [Suspect]
     Active Substance: EPIRUBICIN HYDROCHLORIDE
     Indication: Breast cancer
     Dosage: UNK, START DATE:JAN-2019, AS A PART OF  FEC THERAPY
     Route: 041
  3. FLUOROURACIL [Suspect]
     Active Substance: FLUOROURACIL
     Indication: Breast cancer
     Dosage: UNK, START DATE: JAN-2019, AS A PART OF  FEC THERAPY
     Route: 041
  4. PERINDOPRIL ERBUMINE [Concomitant]
     Active Substance: PERINDOPRIL ERBUMINE
     Dosage: 8MG, ONCE A DAY
     Route: 065
  5. SPIRONOLACTONE [Concomitant]
     Active Substance: SPIRONOLACTONE
     Dosage: 25 MG, ONCE A DAY
     Route: 065
  6. DAPRODUSTAT [Concomitant]
     Active Substance: DAPRODUSTAT
     Dosage: 2 MG, ONCE A DAY
     Route: 065
  7. FEBUXOSTAT [Concomitant]
     Active Substance: FEBUXOSTAT
     Dosage: 10 MG, ONCE A DAY
     Route: 065
  8. LOKELMA [Concomitant]
     Active Substance: SODIUM ZIRCONIUM CYCLOSILICATE
     Dosage: 5 G, TWICE A DAY
     Route: 048
  9. HALAVEN [Concomitant]
     Active Substance: ERIBULIN MESYLATE
     Dosage: UNK, 1ST CYCLE
     Route: 065
     Dates: start: 20231108, end: 20231108
  10. HALAVEN [Concomitant]
     Active Substance: ERIBULIN MESYLATE
     Dosage: UNK,  2ND CYCLE
     Route: 065
     Dates: start: 20231129, end: 20231129

REACTIONS (4)
  - Metastasis [Not Recovered/Not Resolved]
  - Neoplasm malignant [Unknown]
  - Myelosuppression [Unknown]
  - Myelodysplastic syndrome [Not Recovered/Not Resolved]

NARRATIVE: CASE EVENT DATE: 20231208
